FAERS Safety Report 8874220 (Version 2)
Quarter: 2013Q1

REPORT INFORMATION
  Report Type: Spontaneous
  Country: BR (occurrence: BR)
  Receive Date: 20121023
  Receipt Date: 20130325
  Transmission Date: 20140127
  Serious: Yes (Other)
  Sender: FDA-Public Use
  Company Number: BR-BRISTOL-MYERS SQUIBB COMPANY-17054438

PATIENT
  Age: 32 Year
  Sex: Female

DRUGS (2)
  1. GLIFAGE XR [Suspect]
     Indication: POLYCYSTIC OVARIES
     Dosage: UNKN-12OCT2012.
     Dates: end: 20121012
  2. YAZ [Concomitant]
     Indication: ORAL CONTRACEPTION
     Route: 048

REACTIONS (7)
  - Intestinal haemorrhage [Not Recovered/Not Resolved]
  - Weight decreased [Recovered/Resolved]
  - Gastrointestinal pain [Not Recovered/Not Resolved]
  - Abdominal discomfort [Not Recovered/Not Resolved]
  - Decreased appetite [Recovered/Resolved]
  - Off label use [Unknown]
  - Rectal fissure [Not Recovered/Not Resolved]
